FAERS Safety Report 5705082-2 (Version None)
Quarter: 2008Q2

REPORT INFORMATION
  Report Type: 
  Country: None (occurrence: None)
  Receive Date: 20080410
  Receipt Date: 20080331
  Transmission Date: 20081010
  Serious: Yes (Hospitalization, Other)
  Sender: FDA-Public Use
  Company Number: 2008SP006327

PATIENT

DRUGS (3)
  1. MIRALAX [Suspect]
     Indication: DRUG USE FOR UNKNOWN INDICATION
     Dosage: PO, PO
     Route: 048
     Dates: start: 20080327, end: 20080329
  2. MIRALAX [Suspect]
     Indication: DRUG USE FOR UNKNOWN INDICATION
     Dosage: PO, PO
     Route: 048
  3. ANTIHYPERTENSIVES [Concomitant]

REACTIONS (3)
  - ABDOMINAL PAIN UPPER [None]
  - FEELING COLD [None]
  - HYPERHIDROSIS [None]
